FAERS Safety Report 19221455 (Version 1)
Quarter: 2021Q2

REPORT INFORMATION
  Report Type: Spontaneous
  Country: CN (occurrence: CN)
  Receive Date: 20210506
  Receipt Date: 20210506
  Transmission Date: 20210717
  Serious: Yes (Life-Threatening, Hospitalization, Disabling, Other)
  Sender: FDA-Public Use
  Company Number: CN-ASTRAZENECA-2021A385194

PATIENT
  Age: 51 Year
  Sex: Male
  Weight: 70 kg

DRUGS (4)
  1. PUYOUKE(RECOMBINANT HUMAN PROUROKINASE FOR INJECTION) [Suspect]
     Active Substance: INVESTIGATIONAL PRODUCT
     Indication: THROMBOLYSIS
     Route: 041
     Dates: start: 20210426, end: 20210426
  2. TICAGRELOR. [Suspect]
     Active Substance: TICAGRELOR
     Indication: ACUTE MYOCARDIAL INFARCTION
     Route: 048
     Dates: start: 20210426, end: 20210426
  3. ASPIRIN. [Suspect]
     Active Substance: ASPIRIN
     Route: 048
     Dates: start: 20210426, end: 20210426
  4. SODIUM CHLORIDE. [Concomitant]
     Active Substance: SODIUM CHLORIDE
     Route: 041
     Dates: start: 20210426, end: 20210426

REACTIONS (2)
  - Cerebral haemorrhage [Unknown]
  - Brain herniation [Unknown]

NARRATIVE: CASE EVENT DATE: 20210426
